FAERS Safety Report 19782994 (Version 2)
Quarter: 2021Q4

REPORT INFORMATION
  Report Type: Report from Study
  Country: US (occurrence: US)
  Receive Date: 20210903
  Receipt Date: 20211011
  Transmission Date: 20220303
  Serious: Yes (Other)
  Sender: FDA-Public Use
  Company Number: US-CIPLA LTD.-2021US06008

PATIENT

DRUGS (4)
  1. GEMCITABINE [Suspect]
     Active Substance: GEMCITABINE
     Indication: Neoplasm
     Dosage: 1000 MILLIGRAM/SQ. METER, 28 DAYS CYCLE
     Route: 042
  2. PACLITAXEL [Suspect]
     Active Substance: PACLITAXEL
     Indication: Neoplasm
     Dosage: 125 MILLIGRAM/SQ. METER ON DAYS 1/8/15, 28 DAY CYCLE
     Route: 042
  3. CERITINIB [Concomitant]
     Active Substance: CERITINIB
     Indication: Neoplasm
     Dosage: 450 MG, DAILY
     Route: 048
  4. CERITINIB [Concomitant]
     Active Substance: CERITINIB
     Dosage: UNK, DOSE ESCALATIONS
     Route: 048

REACTIONS (3)
  - Toxicity to various agents [Unknown]
  - Drug intolerance [Unknown]
  - Vomiting [Unknown]
